FAERS Safety Report 26006045 (Version 1)
Quarter: 2025Q4

REPORT INFORMATION
  Report Type: Spontaneous
  Country: CN (occurrence: CN)
  Receive Date: 20251106
  Receipt Date: 20251106
  Transmission Date: 20260117
  Serious: Yes (Other)
  Sender: ROCHE
  Company Number: CN-BoehringerIngelheim-2025-BI-104479

PATIENT
  Age: 50 Year
  Sex: Male
  Weight: 76 kg

DRUGS (2)
  1. ALTEPLASE [Suspect]
     Active Substance: ALTEPLASE
     Indication: Cerebral infarction
     Route: 042
     Dates: start: 20251014, end: 20251014
  2. ALTEPLASE [Suspect]
     Active Substance: ALTEPLASE
     Dosage: CONTINUOUS INFUSION
     Route: 042
     Dates: start: 20251014, end: 20251014

REACTIONS (4)
  - Gingival bleeding [Recovered/Resolved]
  - Depressed level of consciousness [Unknown]
  - Tangentiality [Unknown]
  - Dysphoria [Unknown]

NARRATIVE: CASE EVENT DATE: 20251014
